FAERS Safety Report 9349532 (Version 13)
Quarter: 2016Q1

REPORT INFORMATION
  Report Type: Spontaneous
  Country: US (occurrence: US)
  Receive Date: 20130614
  Receipt Date: 20160223
  Transmission Date: 20160526
  Serious: Yes (Hospitalization, Other)
  Sender: FDA-Public Use
  Company Number: US-GLAXOSMITHKLINE-A1027160A

PATIENT
  Age: 60 Year
  Sex: Female
  Weight: 73.7 kg

DRUGS (12)
  1. FLOLAN [Suspect]
     Active Substance: EPOPROSTENOL SODIUM
     Dosage: UNK
     Dates: start: 20070223
  2. WARFARIN [Concomitant]
     Active Substance: WARFARIN
  3. FLOLAN [Suspect]
     Active Substance: EPOPROSTENOL SODIUM
     Dosage: UNK
     Dates: start: 20070223
  4. FLOLAN [Suspect]
     Active Substance: EPOPROSTENOL SODIUM
     Dosage: UNK
     Dates: start: 20070223
  5. FLOLAN [Suspect]
     Active Substance: EPOPROSTENOL SODIUM
     Dosage: UNK
  6. COUMADIN [Concomitant]
     Active Substance: WARFARIN SODIUM
  7. REVATIO [Concomitant]
     Active Substance: SILDENAFIL CITRATE
  8. SILDENAFIL. [Concomitant]
     Active Substance: SILDENAFIL
  9. FLOLAN [Suspect]
     Active Substance: EPOPROSTENOL SODIUM
     Dosage: 18 NG/KG/MIN
     Dates: start: 20070301
  10. FLOLAN [Suspect]
     Active Substance: EPOPROSTENOL SODIUM
     Indication: PULMONARY ARTERIAL HYPERTENSION
     Dosage: CONCENTRATION: 30,000 NG/ML, PUMP RATE: 60 ML/DAY, VIAL STRENGTH: 1.5 MG.DOSE: 17.5 NG/KG/MIN, [...]
     Route: 065
     Dates: start: 20070223
  11. FLOLAN [Suspect]
     Active Substance: EPOPROSTENOL SODIUM
     Dosage: UNK
     Dates: start: 20070223
  12. FLOLAN [Suspect]
     Active Substance: EPOPROSTENOL SODIUM
     Dosage: 18 NG/KG/MIN CONTINUOUSLY

REACTIONS (10)
  - Physiotherapy [Recovered/Resolved]
  - Facial pain [Unknown]
  - Catheterisation cardiac [Recovered/Resolved]
  - Limb operation [Recovered/Resolved]
  - Thermal burn [Recovered/Resolved]
  - Limb injury [Recovered/Resolved]
  - Hospitalisation [Recovered/Resolved]
  - Colonoscopy [Unknown]
  - Arteriovenous fistula [Recovered/Resolved]
  - Staphylococcal infection [Recovered/Resolved]

NARRATIVE: CASE EVENT DATE: 20130607
